FAERS Safety Report 12667332 (Version 4)
Quarter: 2016Q4

REPORT INFORMATION
  Report Type: Report from Study
  Country: US (occurrence: US)
  Receive Date: 20160819
  Receipt Date: 20161011
  Transmission Date: 20170207
  Serious: Yes (Other)
  Sender: FDA-Public Use
  Company Number: US-AMGEN-USASL2016105608

PATIENT
  Age: 56 Year
  Sex: Female

DRUGS (1)
  1. ENBREL [Suspect]
     Active Substance: ETANERCEPT
     Indication: RHEUMATOID ARTHRITIS
     Dosage: 50 MG, QWK
     Route: 065

REACTIONS (8)
  - Blister [Unknown]
  - Nausea [Unknown]
  - Eye swelling [Unknown]
  - Pruritus [Unknown]
  - Feeling hot [Unknown]
  - Chills [Unknown]
  - Swelling [Unknown]
  - Rheumatoid arthritis [Unknown]
